FAERS Safety Report 16177173 (Version 1)
Quarter: 2019Q2

REPORT INFORMATION
  Report Type: Spontaneous
  Country: DE (occurrence: DE)
  Receive Date: 20190410
  Receipt Date: 20190410
  Transmission Date: 20190711
  Serious: Yes (Congenital Anomaly, Other)
  Sender: FDA-Public Use
  Company Number: DE-TORRENT-00013725

PATIENT
  Age: 1 Day
  Sex: Male
  Weight: 3 kg

DRUGS (3)
  1. SERTRALINE [Suspect]
     Active Substance: SERTRALINE HYDROCHLORIDE
     Indication: DEPRESSION
     Dosage: 200 [MG/D ]
     Route: 064
     Dates: start: 20170801, end: 20180509
  2. OLANZAPINE. [Suspect]
     Active Substance: OLANZAPINE
     Indication: DEPRESSION
     Dosage: 10 [MG/D ]
     Route: 064
     Dates: start: 20170801, end: 20180509
  3. AMITRIPTYLIN [Suspect]
     Active Substance: AMITRIPTYLINE
     Indication: DEPRESSION
     Dosage: 40 [MG/D ]
     Route: 064
     Dates: start: 20170801, end: 20180509

REACTIONS (12)
  - Pierre Robin syndrome [Not Recovered/Not Resolved]
  - Retrognathia [Not Recovered/Not Resolved]
  - Hypotonia [Not Recovered/Not Resolved]
  - Foetal exposure during pregnancy [Unknown]
  - Haemangioma [Not Recovered/Not Resolved]
  - Hyperreflexia [Not Recovered/Not Resolved]
  - Dysphagia [Not Recovered/Not Resolved]
  - Hypertonia [Not Recovered/Not Resolved]
  - Velopharyngeal incompetence [Not Recovered/Not Resolved]
  - Infantile apnoea [Recovered/Resolved]
  - Acoustic stimulation tests abnormal [Unknown]
  - Oesophageal stenosis [Unknown]

NARRATIVE: CASE EVENT DATE: 20180509
